FAERS Safety Report 9473024 (Version 1)
Quarter: 2013Q3

REPORT INFORMATION
  Report Type: Spontaneous
  Country: US (occurrence: US)
  Receive Date: 20130823
  Receipt Date: 20130823
  Transmission Date: 20140515
  Serious: No
  Sender: FDA-Public Use
  Company Number: US-BRISTOL-MYERS SQUIBB COMPANY-17338401

PATIENT
  Age: 78 Year
  Sex: Male
  Weight: 120.18 kg

DRUGS (11)
  1. SPRYCEL [Suspect]
     Indication: CHRONIC MYELOID LEUKAEMIA
     Route: 048
     Dates: start: 20121116
  2. ACETYLSALICYLIC ACID [Suspect]
  3. BUMETANIDE [Concomitant]
  4. CALCIUM [Concomitant]
  5. CENTRUM [Concomitant]
  6. IMODIUM [Concomitant]
  7. LOSARTAN [Concomitant]
  8. REMERON [Concomitant]
  9. TRICOR [Concomitant]
  10. VITAMIN C [Concomitant]
  11. ZOLPIDEM [Concomitant]

REACTIONS (1)
  - Headache [Unknown]
